FAERS Safety Report 24203940 (Version 1)
Quarter: 2024Q3

REPORT INFORMATION
  Report Type: Spontaneous
  Country: US (occurrence: US)
  Receive Date: 20240813
  Receipt Date: 20240813
  Transmission Date: 20241017
  Serious: Yes (Death)
  Sender: STRIDES
  Company Number: US-STRIDES ARCOLAB LIMITED-2024SP010005

PATIENT
  Age: 37 Year
  Sex: Male

DRUGS (17)
  1. METHOTREXATE [Suspect]
     Active Substance: METHOTREXATE
     Indication: Chronic myeloid leukaemia
     Dosage: UNK (AS THIRD LINE TREATMENT)
     Route: 065
  2. METHOTREXATE [Suspect]
     Active Substance: METHOTREXATE
     Dosage: UNK (AS FOURTH LINE TREATMENT (AS A PART OF R-MPV REGIMEN))
     Route: 065
  3. DOXORUBICIN [Suspect]
     Active Substance: DOXORUBICIN
     Indication: Chronic myeloid leukaemia
     Dosage: UNK (AS SECOND LINE TREATMENT (AS A PART OF HYPER-CVAD REGIMEN))
     Route: 065
  4. NILOTINIB [Suspect]
     Active Substance: NILOTINIB
     Indication: Chronic myeloid leukaemia
     Dosage: UNK (AS FIRST LINE TREATMENT)
     Route: 065
  5. NILOTINIB [Suspect]
     Active Substance: NILOTINIB
     Dosage: UNK (AS SECOND LINE TREATMENT)
     Route: 065
  6. NILOTINIB [Suspect]
     Active Substance: NILOTINIB
     Dosage: UNK (AS THIRD LINE TREATMENT)
     Route: 065
  7. NILOTINIB [Suspect]
     Active Substance: NILOTINIB
     Dosage: AS FOURTH LINE TREATMENT
     Route: 065
  8. BLINATUMOMAB [Suspect]
     Active Substance: BLINATUMOMAB
     Indication: Chronic myeloid leukaemia
     Dosage: UNK (AS THIRD LINE TREATMENT)
     Route: 065
  9. RITUXIMAB [Suspect]
     Active Substance: RITUXIMAB
     Indication: Chronic myeloid leukaemia
     Dosage: UNK (AS FOURTH LINE TREATMENT (AS A PART OF R-MPV REGIMEN))
     Route: 065
  10. PROCARBAZINE [Suspect]
     Active Substance: PROCARBAZINE
     Indication: Chronic myeloid leukaemia
     Dosage: UNK (AS FOURTH LINE TREATMENT (AS A PART OF R-MPV REGIMEN))
     Route: 065
  11. CYTARABINE [Suspect]
     Active Substance: CYTARABINE
     Indication: Chronic myeloid leukaemia
     Dosage: UNK (AS FIFTH LINE TREATMENT (HIGH DOSE))
     Route: 065
  12. PONATINIB [Suspect]
     Active Substance: PONATINIB
     Indication: Chronic myeloid leukaemia
     Dosage: UNK (AS FIFTH LINE TREATMENT)
     Route: 065
  13. CYCLOPHOSPHAMIDE [Suspect]
     Active Substance: CYCLOPHOSPHAMIDE
     Indication: Chronic myeloid leukaemia
     Dosage: UNK (AS SECOND LINE TREATMENT (AS A PART OF HYPER-CVAD REGIMEN))
     Route: 065
  14. VINCRISTINE [Suspect]
     Active Substance: VINCRISTINE
     Indication: Chronic myeloid leukaemia
     Dosage: UNK (AS SECOND LINE TREATMENT (AS A PART OF HYPER-CVAD REGIMEN))
     Route: 065
  15. VINCRISTINE [Suspect]
     Active Substance: VINCRISTINE
     Dosage: UNK (AS FOURTH LINE TREATMENT (AS A PART OF R-MPV REGIMEN))
     Route: 065
  16. DEXAMETHASONE [Suspect]
     Active Substance: DEXAMETHASONE
     Indication: Chronic myeloid leukaemia
     Dosage: UNK (AS SECOND LINE TREATMENT (AS A PART OF HYPER-CVAD REGIMEN))
     Route: 065
  17. DASATINIB [Suspect]
     Active Substance: DASATINIB
     Indication: Chronic myeloid leukaemia
     Dosage: UNK (AS SECOND LINE TREATMENT)
     Route: 065

REACTIONS (4)
  - Drug ineffective [Fatal]
  - Metabolic encephalopathy [Fatal]
  - Pneumonia [Fatal]
  - Pleural effusion [Unknown]
